FAERS Safety Report 5106912-8 (Version None)
Quarter: 2006Q3

REPORT INFORMATION
  Report Type: 
  Country: None (occurrence: None)
  Receive Date: 20060913
  Receipt Date: 20060829
  Transmission Date: 20061208
  Serious: Yes (Other)
  Sender: FDA-Public Use
  Company Number: 20060185 /

PATIENT
  Age: 30 Year
  Sex: Female

DRUGS (1)
  1. VENOFER [Suspect]
     Indication: ANAEMIA
     Dosage: 50 MG INTRAVENOUS
     Route: 042
     Dates: start: 20060706, end: 20060706

REACTIONS (4)
  - BLINDNESS TRANSIENT [None]
  - DYSPNOEA [None]
  - EMOTIONAL DISTRESS [None]
  - HYPERTENSION [None]
